FAERS Safety Report 6960493-2 (Version None)
Quarter: 2010Q3

REPORT INFORMATION
  Report Type: 
  Country: None (occurrence: None)
  Receive Date: 20100823
  Receipt Date: 20100630
  Transmission Date: 20110219
  Serious: No
  Sender: FDA-Public Use
  Company Number: 014986

PATIENT
  Sex: Female
  Weight: 79.3 kg

DRUGS (4)
  1. CIMZIA [Suspect]
     Indication: CROHN'S DISEASE
     Dosage: (400 MG 1X/2 WEEKS SUBCUTANEOUS)
     Route: 058
     Dates: start: 20100501
  2. OPIUM TINCTURE [Concomitant]
  3. FENTANYL CITRATE [Concomitant]
  4. TIZANIDINE HCL [Concomitant]

REACTIONS (2)
  - HAEMATURIA [None]
  - NEPHROLITHIASIS [None]
